APPROVED DRUG PRODUCT: LOSARTAN POTASSIUM AND HYDROCHLOROTHIAZIDE
Active Ingredient: HYDROCHLOROTHIAZIDE; LOSARTAN POTASSIUM
Strength: 25MG;100MG
Dosage Form/Route: TABLET;ORAL
Application: A090528 | Product #002
Applicant: TORRENT PHARMACEUTICALS LTD
Approved: Oct 6, 2010 | RLD: No | RS: No | Type: DISCN